FAERS Safety Report 8610418-9 (Version None)
Quarter: 2012Q3

REPORT INFORMATION
  Report Type: 
  Country: None (occurrence: None)
  Receive Date: 20120822
  Receipt Date: 20120818
  Transmission Date: 20120928
  Serious: No
  Sender: FDA-Public Use
  Company Number: US-PFIZER INC-2012203170

PATIENT
  Age: 77 Year
  Sex: Female
  Weight: 83.9 kg

DRUGS (1)
  1. CELEBREX [Suspect]
     Indication: ARTHRITIS
     Dosage: UNK, 1X/DAY
     Route: 048
     Dates: start: 20120808, end: 20120815

REACTIONS (3)
  - NASAL CONGESTION [None]
  - COUGH [None]
  - DISCOMFORT [None]
